FAERS Safety Report 21985333 (Version 5)
Quarter: 2024Q2

REPORT INFORMATION
  Report Type: Report from Study
  Country: ES (occurrence: ES)
  Receive Date: 20230213
  Receipt Date: 20240613
  Transmission Date: 20240717
  Serious: Yes (Hospitalization, Other)
  Sender: FDA-Public Use
  Company Number: ES-ABBVIE-4283300

PATIENT
  Sex: Female
  Weight: 69 kg

DRUGS (2)
  1. CARBIDOPA\LEVODOPA [Suspect]
     Active Substance: CARBIDOPA\LEVODOPA
     Indication: Parkinson^s disease
     Route: 050
     Dates: start: 20171130
  2. CARBIDOPA\LEVODOPA [Suspect]
     Active Substance: CARBIDOPA\LEVODOPA

REACTIONS (14)
  - Illness [Unknown]
  - Stoma site reaction [Unknown]
  - General physical health deterioration [Recovering/Resolving]
  - Unevaluable event [Unknown]
  - Disorientation [Recovered/Resolved]
  - Speech disorder [Recovered/Resolved]
  - Stoma site reaction [Unknown]
  - Posture abnormal [Unknown]
  - Device leakage [Unknown]
  - Peristalsis visible [Unknown]
  - Stoma site discharge [Not Recovered/Not Resolved]
  - Stoma site reaction [Unknown]
  - Pyrexia [Recovered/Resolved]
  - Bedridden [Recovered/Resolved]

NARRATIVE: CASE EVENT DATE: 20230101
